FAERS Safety Report 25524973 (Version 2)
Quarter: 2025Q3

REPORT INFORMATION
  Report Type: Spontaneous
  Country: EU (occurrence: EU)
  Receive Date: 20250707
  Receipt Date: 20250723
  Transmission Date: 20251020
  Serious: Yes (Hospitalization, Other)
  Sender: CHEPLAPHARM
  Company Number: EU-CHEPLA-2025008146

PATIENT
  Age: 81 Year
  Sex: Female

DRUGS (7)
  1. OLANZAPINE [Suspect]
     Active Substance: OLANZAPINE
     Indication: Product used for unknown indication
  2. BROTIZOLAM [Suspect]
     Active Substance: BROTIZOLAM
     Indication: Product used for unknown indication
  3. RISPERIDONE [Suspect]
     Active Substance: RISPERIDONE
     Indication: Product used for unknown indication
  4. FLUOXETINE [Suspect]
     Active Substance: FLUOXETINE HYDROCHLORIDE
     Indication: Product used for unknown indication
  5. CLORAZEPATE DIPOTASSIUM [Suspect]
     Active Substance: CLORAZEPATE DIPOTASSIUM
     Indication: Cardiac failure
  6. CLORAZEPATE DIPOTASSIUM [Suspect]
     Active Substance: CLORAZEPATE DIPOTASSIUM
     Indication: Depression
  7. AMOXICILLIN\CLAVULANIC ACID [Suspect]
     Active Substance: AMOXICILLIN\CLAVULANIC ACID
     Indication: Product used for unknown indication

REACTIONS (4)
  - Renal tubular acidosis [Recovering/Resolving]
  - Respiratory acidosis [Unknown]
  - Hypoxia [Unknown]
  - Sjogren^s syndrome [Unknown]
